FAERS Safety Report 12517204 (Version 1)
Quarter: 2016Q2

REPORT INFORMATION
  Report Type: Spontaneous
  Country: US (occurrence: US)
  Receive Date: 20160630
  Receipt Date: 20160630
  Transmission Date: 20160815
  Serious: Yes (Hospitalization)
  Sender: FDA-Public Use
  Company Number: US-TEVA-671580USA

PATIENT
  Age: 60 Year
  Sex: Female
  Weight: 45.4 kg

DRUGS (1)
  1. OLANZAPINE. [Suspect]
     Active Substance: OLANZAPINE

REACTIONS (4)
  - Palpitations [Unknown]
  - Tachycardia [Unknown]
  - Wrong technique in product usage process [Unknown]
  - Lethargy [Unknown]

NARRATIVE: CASE EVENT DATE: 201606
